FAERS Safety Report 20111122 (Version 1)
Quarter: 2021Q4

REPORT INFORMATION
  Report Type: Other
  Country: CA (occurrence: CA)
  Receive Date: 20211125
  Receipt Date: 20211125
  Transmission Date: 20220303
  Serious: Yes (Other)
  Sender: FDA-Public Use
  Company Number: CA-CELLTRION INC.-2021CA015708

PATIENT

DRUGS (2)
  1. TRASTUZUMAB [Suspect]
     Active Substance: TRASTUZUMAB
     Indication: Breast cancer
     Dosage: 1 EVERY 21 DAYS
     Route: 065
  2. RAMIPRIL [Concomitant]
     Active Substance: RAMIPRIL
     Dosage: 1.25 MILLIGRAM, 1 EVERY 1 DAY
     Route: 065

REACTIONS (4)
  - Diabetes mellitus [Unknown]
  - Seasonal allergy [Unknown]
  - Cardiac disorder [Unknown]
  - Hypertension [Unknown]
